FAERS Safety Report 8316643-9 (Version None)
Quarter: 2012Q2

REPORT INFORMATION
  Report Type: 
  Country: None (occurrence: None)
  Receive Date: 20120427
  Receipt Date: 20120423
  Transmission Date: 20120825
  Serious: Yes (Death)
  Sender: FDA-Public Use
  Company Number: PHHY2012US035259

PATIENT
  Age: 56 Year
  Sex: Male

DRUGS (5)
  1. CLOPIDOGREL [Suspect]
  2. NITROGLYCERIN [Suspect]
  3. RANOLAZINE [Concomitant]
  4. METOPROLOL TARTRATE [Suspect]
  5. SALICYLATE [Concomitant]

REACTIONS (1)
  - COMPLETED SUICIDE [None]
